FAERS Safety Report 17105477 (Version 5)
Quarter: 2021Q4

REPORT INFORMATION
  Report Type: Spontaneous
  Country: ZA (occurrence: ZA)
  Receive Date: 20191203
  Receipt Date: 20211214
  Transmission Date: 20220304
  Serious: Yes (Other)
  Sender: FDA-Public Use
  Company Number: ZA-PFIZER INC-2019178465

PATIENT
  Age: 58 Year
  Sex: Male
  Weight: 82 kg

DRUGS (4)
  1. ENBREL [Suspect]
     Active Substance: ETANERCEPT
     Indication: Product used for unknown indication
     Dosage: 50 MILLIGRAM, QWK
     Route: 058
  2. ENBREL [Suspect]
     Active Substance: ETANERCEPT
     Dosage: 25 MILLIGRAM
     Route: 065
     Dates: start: 20100101
  3. NAFASOL [Concomitant]
     Dosage: UNK
     Dates: start: 19900108
  4. CATAFLAM [DICLOFENAC POTASSIUM] [Concomitant]
     Dosage: UNK
     Dates: start: 19900108

REACTIONS (4)
  - Spinal pain [Unknown]
  - Spinal osteoarthritis [Unknown]
  - Dyslipidaemia [Unknown]
  - Pain [Unknown]

NARRATIVE: CASE EVENT DATE: 20100308
